FAERS Safety Report 9753128 (Version 3)
Quarter: 2015Q3

REPORT INFORMATION
  Report Type: Spontaneous
  Country: US (occurrence: US)
  Receive Date: 20131213
  Receipt Date: 20150805
  Transmission Date: 20151125
  Serious: No
  Sender: FDA-Public Use
  Company Number: US-GILEAD-2010-0026295

PATIENT
  Age: 64 Year
  Sex: Female

DRUGS (26)
  1. REVATIO [Concomitant]
     Active Substance: SILDENAFIL CITRATE
  2. TRAZODONE [Concomitant]
     Active Substance: TRAZODONE HYDROCHLORIDE
  3. COGENTIN [Concomitant]
     Active Substance: BENZTROPINE MESYLATE
  4. FLONASE [Concomitant]
     Active Substance: FLUTICASONE PROPIONATE
  5. CELEBREX [Concomitant]
     Active Substance: CELECOXIB
  6. METFORMIN [Concomitant]
     Active Substance: METFORMIN HYDROCHLORIDE
  7. COLCHICINE. [Concomitant]
     Active Substance: COLCHICINE
  8. PROAIR HFA [Concomitant]
     Active Substance: ALBUTEROL SULFATE
  9. SINGULAIR [Concomitant]
     Active Substance: MONTELUKAST SODIUM
  10. LEXAPRO [Concomitant]
     Active Substance: ESCITALOPRAM OXALATE
  11. PHENERGAN [Concomitant]
     Active Substance: PROMETHAZINE HYDROCHLORIDE
  12. LISINOPRIL. [Concomitant]
     Active Substance: LISINOPRIL
  13. BUSPIRONE HCL [Concomitant]
     Active Substance: BUSPIRONE HYDROCHLORIDE
  14. PROTONIX [Concomitant]
     Active Substance: PANTOPRAZOLE SODIUM
  15. ADVAIR HFA [Concomitant]
     Active Substance: FLUTICASONE PROPIONATE\SALMETEROL XINAFOATE
  16. TOPAMAX [Concomitant]
     Active Substance: TOPIRAMATE
  17. RITALIN [Concomitant]
     Active Substance: METHYLPHENIDATE HYDROCHLORIDE
  18. SEROQUEL [Concomitant]
     Active Substance: QUETIAPINE FUMARATE
  19. ARANESP [Concomitant]
     Active Substance: DARBEPOETIN ALFA
  20. LETAIRIS [Suspect]
     Active Substance: AMBRISENTAN
     Indication: PULMONARY ARTERIAL HYPERTENSION
     Route: 048
     Dates: start: 20091009
  21. SKELAXIN [Concomitant]
     Active Substance: METAXALONE
  22. LORTAB 10/500 [Concomitant]
  23. FROVA [Concomitant]
     Active Substance: FROVATRIPTAN SUCCINATE
  24. FE-TINIC [Concomitant]
     Active Substance: VITAMINS
  25. ALBNEB [Concomitant]
  26. COREG [Concomitant]
     Active Substance: CARVEDILOL

REACTIONS (2)
  - Leukopenia [Recovered/Resolved]
  - Oedema peripheral [Unknown]
